FAERS Safety Report 7654940-0 (Version None)
Quarter: 2011Q3

REPORT INFORMATION
  Report Type: 
  Country: None (occurrence: None)
  Receive Date: 20110804
  Receipt Date: 20110728
  Transmission Date: 20111222
  Serious: Yes (Hospitalization)
  Sender: FDA-Public Use
  Company Number: FR-US-EMD SERONO, INC.-7073341

PATIENT
  Sex: Female

DRUGS (2)
  1. OMIX [Concomitant]
     Indication: PRODUCT USED FOR UNKNOWN INDICATION
  2. REBIF [Suspect]
     Indication: MULTIPLE SCLEROSIS
     Route: 058
     Dates: start: 20010101, end: 20110501

REACTIONS (3)
  - THROMBOTIC MICROANGIOPATHY [None]
  - ACCELERATED HYPERTENSION [None]
  - NEUROMYELITIS OPTICA [None]
